FAERS Safety Report 7441609 (Version 8)
Quarter: 2012Q4

REPORT INFORMATION
  Report Type: 
  Country: JP (occurrence: JP)
  Receive Date: 20100629
  Receipt Date: 20120928
  Transmission Date: 20130627
  Serious: Yes (Hospitalization, Other)
  Sender: FDA-Public Use
  Company Number: JP-ROCHE-685603

PATIENT
  Age: 14 Year
  Sex: Female
  Weight: 69 kg

DRUGS (45)
  1. ROACTEMRA [Suspect]
     Indication: JUVENILE ARTHRITIS
     Route: 041
     Dates: start: 20090817, end: 20090831
  2. ROACTEMRA [Suspect]
     Route: 041
     Dates: start: 20090914, end: 20090914
  3. ROACTEMRA [Suspect]
     Route: 041
     Dates: start: 20090928, end: 20100414
  4. ROACTEMRA [Suspect]
     Route: 041
     Dates: start: 20100506, end: 20100506
  5. ROACTEMRA [Suspect]
     Route: 041
     Dates: start: 20100520, end: 20100601
  6. ROACTEMRA [Suspect]
     Route: 041
     Dates: start: 20100614, end: 20100629
  7. ROACTEMRA [Suspect]
     Route: 041
     Dates: start: 20100715, end: 2011
  8. ROACTEMRA [Suspect]
     Route: 041
  9. PREDNISOLONE [Suspect]
     Indication: JUVENILE ARTHRITIS
     Route: 048
  10. PREDNISOLONE [Suspect]
     Route: 048
     Dates: start: 20090703, end: 20090713
  11. PREDNISOLONE [Suspect]
     Route: 048
     Dates: start: 20090721, end: 20090724
  12. PREDNISOLONE [Suspect]
     Route: 048
     Dates: start: 20090804, end: 20090814
  13. PREDNISOLONE [Suspect]
     Route: 048
     Dates: start: 20090815, end: 20090817
  14. PREDNISOLONE [Suspect]
     Route: 048
     Dates: start: 20090818, end: 20090831
  15. PREDNISOLONE [Suspect]
     Route: 048
     Dates: start: 20090901, end: 20090914
  16. PREDNISOLONE [Suspect]
     Route: 048
     Dates: start: 20090915, end: 20090928
  17. PREDNISOLONE [Suspect]
     Route: 048
     Dates: start: 20090929, end: 20091013
  18. PREDNISOLONE [Suspect]
     Route: 048
     Dates: start: 20091014, end: 20091028
  19. PREDNISOLONE [Suspect]
     Route: 048
     Dates: start: 20091029, end: 20091110
  20. PREDNISOLONE [Suspect]
     Route: 048
     Dates: start: 20091111, end: 20091125
  21. PREDNISOLONE [Suspect]
     Route: 048
     Dates: start: 20091126, end: 20091208
  22. PREDNISOLONE [Suspect]
     Route: 048
     Dates: start: 20091209, end: 20091222
  23. PREDNISOLONE [Suspect]
     Route: 048
     Dates: start: 20091223, end: 20100119
  24. PREDNISOLONE [Suspect]
     Route: 048
     Dates: start: 20100120, end: 20100217
  25. PREDNISOLONE [Suspect]
     Route: 048
     Dates: start: 20100218, end: 20100316
  26. PREDNISOLONE [Suspect]
     Route: 048
     Dates: start: 20100317, end: 20100506
  27. PREDNISOLONE [Suspect]
     Route: 048
     Dates: start: 20100507, end: 20100601
  28. PREDNISOLONE [Suspect]
     Route: 048
     Dates: start: 20100610, end: 20100715
  29. PREDNISOLONE [Suspect]
     Route: 048
     Dates: start: 20100716, end: 20100813
  30. PREDNISOLONE [Suspect]
     Route: 048
  31. SANDIMMUN [Suspect]
     Indication: JUVENILE ARTHRITIS
     Dosage: FORM: INJECTIONROUTE: INTRAVENOUS (NOT OTHERWISE SPECIFIED)
     Route: 042
     Dates: start: 20090726, end: 20090808
  32. SANDIMMUN [Suspect]
     Route: 042
     Dates: start: 20100601, end: 20100606
  33. NEORAL [Suspect]
     Indication: JUVENILE ARTHRITIS
     Route: 048
  34. NEORAL [Suspect]
     Route: 048
     Dates: start: 20090818, end: 20090928
  35. DEXAMETHASONE [Suspect]
     Indication: JUVENILE ARTHRITIS
     Dosage: DRUG NAME: LIMETHASON
     Route: 041
     Dates: start: 20100601, end: 20100603
  36. GASTER [Concomitant]
     Indication: PROPHYLAXIS AGAINST GASTROINTESTINAL ULCER
     Route: 048
  37. ONEALFA [Concomitant]
     Indication: OSTEOPOROSIS PROPHYLAXIS
     Route: 048
  38. NORVASC [Concomitant]
     Indication: HYPERTENSION
     Route: 048
     Dates: start: 20090719, end: 20090802
  39. NORVASC [Concomitant]
     Route: 048
     Dates: start: 20090803, end: 20091110
  40. NORVASC [Concomitant]
     Route: 048
  41. LONGES [Concomitant]
     Indication: HYPERTENSION
     Route: 048
     Dates: start: 2008, end: 20090702
  42. LONGES [Concomitant]
     Route: 048
  43. SOLU-CORTEF [Concomitant]
     Route: 042
     Dates: start: 20090914, end: 20090914
  44. SOLU-CORTEF [Concomitant]
     Route: 042
     Dates: start: 20090928, end: 20090928
  45. ATARAX-P [Concomitant]
     Route: 042
     Dates: start: 20090914, end: 20090914

REACTIONS (8)
  - Histiocytosis haematophagic [Recovered/Resolved]
  - Disseminated intravascular coagulation [Recovered/Resolved]
  - Impaired healing [Recovered/Resolved]
  - Thermal burn [Recovered/Resolved]
  - Subcutaneous abscess [Recovered/Resolved]
  - Hypertension [Not Recovered/Not Resolved]
  - Lip pruritus [Unknown]
  - Blister [Unknown]
